FAERS Safety Report 8611193-4 (Version None)
Quarter: 2012Q3

REPORT INFORMATION
  Report Type: 
  Country: None (occurrence: None)
  Receive Date: 20120822
  Receipt Date: 20120810
  Transmission Date: 20120928
  Serious: Yes (Other)
  Sender: FDA-Public Use
  Company Number: FR-CELGENEUS-056-21880-12081152

PATIENT
  Sex: Female
  Weight: 57 kg

DRUGS (3)
  1. RITUXIMAB [Concomitant]
     Indication: B-CELL LYMPHOMA
     Route: 065
     Dates: start: 20110315
  2. RITUXIMAB [Concomitant]
     Route: 065
     Dates: start: 20110927
  3. REVLIMID [Suspect]
     Indication: B-CELL LYMPHOMA
     Dosage: 25 MILLIGRAM
     Route: 048
     Dates: start: 20110315, end: 20110711

REACTIONS (1)
  - THYROID CANCER [None]
